FAERS Safety Report 7312805-8 (Version None)
Quarter: 2011Q1

REPORT INFORMATION
  Report Type: 
  Country: None (occurrence: None)
  Receive Date: 20110224
  Receipt Date: 20110215
  Transmission Date: 20110831
  Serious: Yes (Hospitalization)
  Sender: FDA-Public Use
  Company Number: US-BAXTER-2011BH002946

PATIENT
  Age: 64 Year
  Sex: Male

DRUGS (2)
  1. DIANEAL [Suspect]
     Indication: PERITONEAL DIALYSIS
     Route: 033
  2. ANTIHYPERTENSIVES [Concomitant]
     Indication: BLOOD PRESSURE SYSTOLIC INCREASED
     Route: 065

REACTIONS (5)
  - CONTUSION [None]
  - BLOOD PRESSURE SYSTOLIC INCREASED [None]
  - JOINT INJURY [None]
  - DIZZINESS [None]
  - DEHYDRATION [None]
